FAERS Safety Report 9917999 (Version 4)
Quarter: 2014Q2

REPORT INFORMATION
  Report Type: Spontaneous
  Country: US (occurrence: US)
  Receive Date: 20140222
  Receipt Date: 20140520
  Transmission Date: 20141212
  Serious: No
  Sender: FDA-Public Use
  Company Number: US-009507513-1402USA010702

PATIENT
  Sex: Female
  Weight: 67.12 kg

DRUGS (5)
  1. OXYTROL FOR WOMEN [Suspect]
     Indication: HYPERTONIC BLADDER
     Dosage: 1 DF, Q4D
     Route: 062
     Dates: start: 20140125, end: 20140201
  2. OMEPRAZOLE [Concomitant]
     Indication: GASTROOESOPHAGEAL REFLUX DISEASE
     Dosage: UNK, UNKNOWN
  3. LOVASTATIN [Concomitant]
     Indication: BLOOD CHOLESTEROL
     Dosage: UNK, UNKNOWN
  4. OMEGA-3 MARINE TRIGLYCERIDES [Concomitant]
     Indication: PRODUCT USED FOR UNKNOWN INDICATION
     Dosage: UNK, UNKNOWN
  5. Q-10 [Concomitant]
     Indication: PRODUCT USED FOR UNKNOWN INDICATION
     Dosage: UNK, UNKNOWN

REACTIONS (10)
  - Dermatitis allergic [Recovering/Resolving]
  - Dermatitis contact [Recovering/Resolving]
  - Skin irritation [Recovering/Resolving]
  - Insomnia [Unknown]
  - Discomfort [Unknown]
  - Application site discolouration [Not Recovered/Not Resolved]
  - Pruritus [Recovering/Resolving]
  - Application site erythema [Recovering/Resolving]
  - Application site rash [Recovering/Resolving]
  - Product adhesion issue [Unknown]
